FAERS Safety Report 18605607 (Version 2)
Quarter: 2021Q1

REPORT INFORMATION
  Report Type: Spontaneous
  Country: FR (occurrence: FR)
  Receive Date: 20201211
  Receipt Date: 20210118
  Transmission Date: 20210419
  Serious: Yes (Other)
  Sender: FDA-Public Use
  Company Number: FR-PFIZER INC-2020486417

PATIENT
  Age: 55 Year
  Sex: Female

DRUGS (2)
  1. PREDNISONE. [Concomitant]
     Active Substance: PREDNISONE
     Dosage: UNK
  2. METHOTREXATE. [Suspect]
     Active Substance: METHOTREXATE
     Indication: POLYMYALGIA RHEUMATICA
     Dosage: 15 MG, WEEKLY
     Route: 058
     Dates: start: 202006, end: 20201116

REACTIONS (3)
  - Necrotising ulcerative gingivostomatitis [Recovering/Resolving]
  - Headache [Not Recovered/Not Resolved]
  - Musculoskeletal pain [Not Recovered/Not Resolved]

NARRATIVE: CASE EVENT DATE: 202007
